FAERS Safety Report 8336735-8 (Version None)
Quarter: 2012Q2

REPORT INFORMATION
  Report Type: 
  Country: None (occurrence: None)
  Receive Date: 20120504
  Receipt Date: 20120427
  Transmission Date: 20120825
  Serious: No
  Sender: FDA-Public Use
  Company Number: US-JNJFOC-20120501666

PATIENT
  Sex: Male
  Weight: 68.04 kg

DRUGS (4)
  1. OXYCODONE HCL [Concomitant]
     Indication: PAIN
     Route: 048
     Dates: start: 20110101
  2. XANAX [Concomitant]
     Indication: DEPRESSION
     Route: 048
     Dates: start: 20020101
  3. FENTANYL CITRATE [Suspect]
     Indication: MUSCULAR DYSTROPHY
     Route: 062
     Dates: start: 20120301
  4. XANAX [Concomitant]
     Indication: ANXIETY
     Route: 048
     Dates: start: 20020101

REACTIONS (2)
  - WRONG TECHNIQUE IN DRUG USAGE PROCESS [None]
  - PRODUCT QUALITY ISSUE [None]
